FAERS Safety Report 7752175-4 (Version None)
Quarter: 2011Q3

REPORT INFORMATION
  Report Type: 
  Country: None (occurrence: None)
  Receive Date: 20110915
  Receipt Date: 20110908
  Transmission Date: 20111222
  Serious: No
  Sender: FDA-Public Use
  Company Number: US-PFIZER INC-2011216751

PATIENT
  Sex: Male
  Weight: 123 kg

DRUGS (3)
  1. DILANTIN-125 [Suspect]
     Dosage: UNK
  2. ENALAPRIL [Concomitant]
     Indication: BLOOD PRESSURE ABNORMAL
     Dosage: UNK
  3. ZOLOFT [Concomitant]
     Dosage: 50 MG, 1X/DAY

REACTIONS (1)
  - DRUG HYPERSENSITIVITY [None]
